FAERS Safety Report 10227573 (Version 1)
Quarter: 2014Q2

REPORT INFORMATION
  Report Type: Report from Study
  Country: DE (occurrence: DE)
  Receive Date: 20140610
  Receipt Date: 20140610
  Transmission Date: 20141212
  Serious: Yes (Congenital Anomaly)
  Sender: FDA-Public Use
  Company Number: DE-BAYER-2014-081250

PATIENT
  Sex: 0

DRUGS (6)
  1. MOXIFLOXACIN ORAL [Suspect]
     Dosage: 400 MG, UNK
     Route: 064
  2. MOXIFLOXACIN ORAL [Suspect]
     Dosage: 400 MG, UNK
     Route: 064
  3. NIFURATEL [Concomitant]
     Route: 061
  4. NIFURATEL [Concomitant]
     Route: 061
  5. HEXETIDINE [Concomitant]
     Route: 061
  6. HEXETIDINE [Concomitant]
     Route: 061

REACTIONS (3)
  - Foetal exposure during pregnancy [None]
  - Ventricular septal defect [None]
  - Atrial septal defect [None]
